FAERS Safety Report 12241371 (Version 1)
Quarter: 2016Q2

REPORT INFORMATION
  Report Type: Spontaneous
  Country: US (occurrence: US)
  Receive Date: 20160406
  Receipt Date: 20160406
  Transmission Date: 20160815
  Serious: No
  Sender: FDA-Public Use
  Company Number: US-PFIZER INC-2006004553

PATIENT
  Age: 64 Year
  Sex: Male

DRUGS (3)
  1. VIAGRA [Suspect]
     Active Substance: SILDENAFIL CITRATE
     Indication: ERECTILE DYSFUNCTION
  2. CIALIS [Suspect]
     Active Substance: TADALAFIL
     Dosage: UNK
  3. VIAGRA [Suspect]
     Active Substance: SILDENAFIL CITRATE
     Indication: PROSTATE CANCER
     Dosage: 100 MG, UNK
     Route: 048
     Dates: start: 2002

REACTIONS (1)
  - Drug ineffective [Unknown]
